FAERS Safety Report 13599489 (Version 1)
Quarter: 2017Q2

REPORT INFORMATION
  Report Type: Spontaneous
  Country: CA (occurrence: CA)
  Receive Date: 20170531
  Receipt Date: 20170531
  Transmission Date: 20170830
  Serious: Yes (Other)
  Sender: FDA-Public Use
  Company Number: CA-TEVA-774373USA

PATIENT
  Sex: Female

DRUGS (1)
  1. PANTOPRAZOLE [Suspect]
     Active Substance: PANTOPRAZOLE
     Indication: STRESS ULCER
     Dosage: 40 MILLIGRAM DAILY;
     Dates: start: 201702, end: 20170515

REACTIONS (11)
  - Product use in unapproved indication [Unknown]
  - Product substitution issue [Unknown]
  - Gastrooesophageal reflux disease [Unknown]
  - Oesophageal disorder [Unknown]
  - Foreign body [Unknown]
  - Weight decreased [Unknown]
  - Intentional product use issue [Unknown]
  - Hypophagia [Unknown]
  - Adverse event [Unknown]
  - Palpitations [Unknown]
  - Gastrooesophageal reflux disease [Not Recovered/Not Resolved]
